FAERS Safety Report 19145400 (Version 1)
Quarter: 2021Q2

REPORT INFORMATION
  Report Type: Spontaneous
  Country: US (occurrence: US)
  Receive Date: 20210416
  Receipt Date: 20210416
  Transmission Date: 20210717
  Serious: Yes (Other)
  Sender: FDA-Public Use
  Company Number: None

PATIENT
  Age: 75 Year
  Sex: Female

DRUGS (8)
  1. LORAZEPAM. [Concomitant]
     Active Substance: LORAZEPAM
  2. XIIDRA [Concomitant]
     Active Substance: LIFITEGRAST
  3. ENBREL [Suspect]
     Active Substance: ETANERCEPT
     Indication: RHEUMATOID ARTHRITIS
     Dosage: ?          OTHER FREQUENCY:ONCE WEEKLY;?
     Route: 058
     Dates: start: 20180128
  4. CELECOXIB. [Concomitant]
     Active Substance: CELECOXIB
  5. PILOCARPINE. [Concomitant]
     Active Substance: PILOCARPINE
  6. PRIMIDONE. [Concomitant]
     Active Substance: PRIMIDONE
  7. METHOTREXATE. [Concomitant]
     Active Substance: METHOTREXATE
  8. FOLIC ACID. [Concomitant]
     Active Substance: FOLIC ACID

REACTIONS (3)
  - Carpal tunnel syndrome [None]
  - Product dose omission issue [None]
  - Surgery [None]
